FAERS Safety Report 23277142 (Version 1)
Quarter: 2023Q4

REPORT INFORMATION
  Report Type: Spontaneous
  Country: US (occurrence: US)
  Receive Date: 20231208
  Receipt Date: 20231208
  Transmission Date: 20240110
  Serious: No
  Sender: FDA-Public Use
  Company Number: US-KYOWAKIRIN-2023KK019547

PATIENT

DRUGS (2)
  1. CRYSVITA [Suspect]
     Active Substance: BUROSUMAB-TWZA
     Indication: Phosphorus metabolism disorder
     Dosage: 50 MG, 1X/4 WEEKS (20 MG/ML AND 30 MG/ML COMBINED TO ACHIEVE 50 MG )
     Route: 058
  2. CRYSVITA [Suspect]
     Active Substance: BUROSUMAB-TWZA
     Indication: Phosphorus metabolism disorder
     Dosage: 50 MG, 1X/4 WEEKS (20 MG/ML AND 30 MG/ML COMBINED TO ACHIEVE 50 MG )
     Route: 058

REACTIONS (3)
  - Blood phosphorus decreased [Unknown]
  - Therapeutic response decreased [Unknown]
  - Product use in unapproved indication [Unknown]
